FAERS Safety Report 24443770 (Version 2)
Quarter: 2024Q4

REPORT INFORMATION
  Report Type: Report from Study
  Country: US (occurrence: US)
  Receive Date: 20241016
  Receipt Date: 20241017
  Transmission Date: 20250115
  Serious: No
  Sender: ROCHE
  Company Number: US-ROCHE-2269100

PATIENT
  Age: 73 Year
  Sex: Male

DRUGS (14)
  1. RITUXAN [Suspect]
     Active Substance: RITUXIMAB
     Indication: Product used for unknown indication
     Route: 065
  2. VENCLEXTA [Suspect]
     Active Substance: VENETOCLAX
     Indication: Waldenstrom^s macroglobulinaemia
     Dosage: TAKE 4 TAB( 400 MG) BY MOUTH DAILY. TAKE WITH FOOD
     Route: 048
     Dates: start: 20231220
  3. VENCLEXTA [Suspect]
     Active Substance: VENETOCLAX
     Indication: Hypogammaglobulinaemia
  4. ZOVIRAX [Concomitant]
     Active Substance: ACYCLOVIR
     Dosage: TAKE 2 TABS BY MOUTH TWICE DAILY
     Route: 048
     Dates: start: 20240105
  5. ASPIRIN [Concomitant]
     Active Substance: ASPIRIN
     Dosage: TAKE WITH FOOD . INDICATION : 48 HRS AFTER SURGERY RESUME
     Route: 048
  6. LIPITOR [Concomitant]
     Active Substance: ATORVASTATIN CALCIUM
     Dosage: TAKE 1 TAB BY MOUTH AT BEDTIME DAILY
     Route: 048
     Dates: start: 20240206
  7. CRANBERRY [Concomitant]
     Active Substance: CRANBERRY
     Dosage: 2 CAPSULE DAILY
     Route: 048
  8. ELIQUIS [Concomitant]
     Active Substance: APIXABAN
     Route: 048
     Dates: start: 20240104
  9. ESOMEPRAZOLE [Concomitant]
     Active Substance: ESOMEPRAZOLE
     Route: 048
  10. NEXIUM [Concomitant]
     Active Substance: ESOMEPRAZOLE MAGNESIUM
  11. EFUDEX [Concomitant]
     Active Substance: FLUOROURACIL
     Dosage: START ON FOREHEAD , SCALPE TWICE DAILY FOR 2 WEEKS ON 2 WEEKS OFF 2 WEEKS ON
     Route: 061
     Dates: start: 20231213
  12. HYDROCHLOROTHIAZIDE [Concomitant]
     Active Substance: HYDROCHLOROTHIAZIDE
     Route: 048
     Dates: start: 20230811
  13. TOPROL XL [Concomitant]
     Active Substance: METOPROLOL SUCCINATE
     Route: 048
     Dates: start: 20231206
  14. K-DUR [Concomitant]
     Active Substance: POTASSIUM CHLORIDE
     Dosage: TAKE WITH MEAL AND A FULL GLASS OF WATER
     Dates: start: 20231206

REACTIONS (2)
  - Off label use [Unknown]
  - Syncope [Unknown]
